FAERS Safety Report 17914689 (Version 1)
Quarter: 2020Q2

REPORT INFORMATION
  Report Type: Spontaneous
  Country: DE (occurrence: DE)
  Receive Date: 20200619
  Receipt Date: 20200619
  Transmission Date: 20200714
  Serious: Yes (Other)
  Sender: FDA-Public Use
  Company Number: DE-CELLTRION INC.-2020DE023381

PATIENT

DRUGS (9)
  1. TAMOXIFEN [Concomitant]
     Active Substance: TAMOXIFEN
     Indication: BREAST CANCER METASTATIC
     Dosage: UNK, CYCLIC (THREE CYCLES)
  2. EPIRUBICIN [Concomitant]
     Active Substance: EPIRUBICIN
     Dosage: 150 MG/M2, CYCLIC (EVERY 2 WEEKS, THREE CYCLES)
  3. CYCLOPHOSPHAMIDE. [Concomitant]
     Active Substance: CYCLOPHOSPHAMIDE
     Indication: BREAST CANCER METASTATIC
     Dosage: UNK, CYCLIC (THREE CYCLES)
  4. METHOTREXATE. [Concomitant]
     Active Substance: METHOTREXATE
     Indication: BREAST CANCER METASTATIC
     Dosage: UNK, CYCLIC(THREE CYCLES)
  5. PACLITAXEL. [Concomitant]
     Active Substance: PACLITAXEL
     Indication: BREAST CANCER METASTATIC
     Dosage: 250 MG/M2, CYCLIC (THREE CYCLES, EVERY 2 WEEKS)
  6. FLUOROURACIL. [Concomitant]
     Active Substance: FLUOROURACIL
     Indication: BREAST CANCER METASTATIC
     Dosage: UNK, CYCLIC (THREE CYCLES)
  7. TRASTUZUMAB (UNKNOWN) [Suspect]
     Active Substance: TRASTUZUMAB
     Indication: BREAST CANCER METASTATIC
     Dosage: 2 MG/KG, WEEKLY
  8. TRASTUZUMAB (UNKNOWN) [Suspect]
     Active Substance: TRASTUZUMAB
     Indication: METASTASES TO CENTRAL NERVOUS SYSTEM
     Dosage: UNK, CYCLIC (56 MG/KG TOTAL DOSE)
  9. TRASTUZUMAB (UNKNOWN) [Suspect]
     Active Substance: TRASTUZUMAB
     Dosage: 6 MG/KG, EVERY 3 WEEKS (25 CYCLES/EIGHT MORE/ONE MORE CYCLE)

REACTIONS (4)
  - Maternal exposure during pregnancy [Unknown]
  - Off label use [Unknown]
  - Oligohydramnios [Unknown]
  - Medication error [Unknown]
